FAERS Safety Report 13332875 (Version 5)
Quarter: 2018Q2

REPORT INFORMATION
  Report Type: Spontaneous
  Country: US (occurrence: US)
  Receive Date: 20170314
  Receipt Date: 20180405
  Transmission Date: 20180711
  Serious: No
  Sender: FDA-Public Use
  Company Number: US-PFIZER INC-2017106059

PATIENT
  Age: 78 Year
  Sex: Male
  Weight: 68.4 kg

DRUGS (5)
  1. LYRICA [Suspect]
     Active Substance: PREGABALIN
     Indication: DIABETIC NEUROPATHY
     Dosage: 75 MG, TWICE DAILY
     Route: 048
     Dates: start: 201701
  2. LYRICA [Suspect]
     Active Substance: PREGABALIN
     Indication: BURNING SENSATION
  3. TAGAMET [Concomitant]
     Active Substance: CIMETIDINE
     Indication: ABDOMINAL DISCOMFORT
     Dosage: UNK
  4. LYRICA [Suspect]
     Active Substance: PREGABALIN
     Indication: PAIN
  5. METFORMIN [Concomitant]
     Active Substance: METFORMIN HYDROCHLORIDE
     Dosage: UNK

REACTIONS (7)
  - Insomnia [Not Recovered/Not Resolved]
  - Condition aggravated [Unknown]
  - Drug effect incomplete [Unknown]
  - Pain [Unknown]
  - Therapeutic response unexpected [Unknown]
  - Pre-existing condition improved [Unknown]
  - Weight decreased [Unknown]
